FAERS Safety Report 6580667-2 (Version None)
Quarter: 2010Q1

REPORT INFORMATION
  Report Type: 
  Country: None (occurrence: None)
  Receive Date: 20100212
  Receipt Date: 20100202
  Transmission Date: 20100710
  Serious: Yes (Other)
  Sender: FDA-Public Use
  Company Number: US-ABBOTT-10P-163-0623662-00

PATIENT
  Sex: Female
  Weight: 63.106 kg

DRUGS (4)
  1. HUMIRA [Suspect]
     Indication: RHEUMATOID ARTHRITIS
     Route: 058
     Dates: start: 20080101, end: 20090901
  2. HUMIRA [Suspect]
     Dates: start: 20091228
  3. SHINGLES VACCINE [Suspect]
     Indication: IMMUNISATION
  4. METHOTREXATE [Concomitant]
     Indication: RHEUMATOID ARTHRITIS
     Dates: end: 20090901

REACTIONS (6)
  - BREAST MASS [None]
  - PRURITUS [None]
  - PULMONARY FIBROSIS [None]
  - PULMONARY MASS [None]
  - RASH [None]
  - RASH MACULAR [None]
